FAERS Safety Report 11699377 (Version 1)
Quarter: 2015Q4

REPORT INFORMATION
  Report Type: Other
  Country: GB (occurrence: GB)
  Receive Date: 20151104
  Receipt Date: 20151104
  Transmission Date: 20160304
  Serious: Yes (Death)
  Sender: FDA-Public Use
  Company Number: GB-SUN PHARMACEUTICAL INDUSTRIES LTD-2015SUN02165

PATIENT

DRUGS (1)
  1. RILUZOLE. [Suspect]
     Active Substance: RILUZOLE
     Indication: MOTOR NEURONE DISEASE
     Dosage: UNK
     Route: 065

REACTIONS (1)
  - Death [Fatal]
